FAERS Safety Report 18591160 (Version 3)
Quarter: 2022Q4

REPORT INFORMATION
  Report Type: Report from Study
  Country: JP (occurrence: JP)
  Receive Date: 20201208
  Receipt Date: 20221019
  Transmission Date: 20230112
  Serious: Yes (Other)
  Sender: FDA-Public Use
  Company Number: JP-PFIZER INC-2020477175

PATIENT
  Age: 51 Year
  Sex: Male
  Weight: 56 kg

DRUGS (6)
  1. BESPONSA [Suspect]
     Active Substance: INOTUZUMAB OZOGAMICIN
     Dosage: 0.8 MG/M2, 1X/DAY
     Dates: start: 20181101, end: 20181101
  2. BESPONSA [Suspect]
     Active Substance: INOTUZUMAB OZOGAMICIN
     Dosage: 0.5 MG/M2, 1X/DAY
     Dates: start: 20181108, end: 20181108
  3. BESPONSA [Suspect]
     Active Substance: INOTUZUMAB OZOGAMICIN
     Dosage: 0.5 MG/M2, 1X/DAY
     Dates: start: 20181115, end: 20181115
  4. BESPONSA [Suspect]
     Active Substance: INOTUZUMAB OZOGAMICIN
     Dosage: 0.5 MG/M2, 1X/DAY
     Dates: start: 20181212, end: 20181212
  5. BESPONSA [Suspect]
     Active Substance: INOTUZUMAB OZOGAMICIN
     Dosage: UNK MG/M2, 1X/DAY
     Dates: start: 20181219, end: 20181219
  6. BESPONSA [Suspect]
     Active Substance: INOTUZUMAB OZOGAMICIN
     Dosage: UNK MG/M2, 1X/DAY
     Dates: start: 20181226, end: 20181226

REACTIONS (5)
  - Cytokine release syndrome [Unknown]
  - Neutropenia [Unknown]
  - Venoocclusive liver disease [Unknown]
  - Platelet count decreased [Unknown]
  - Anaemia [Unknown]
